FAERS Safety Report 6018200-6 (Version None)
Quarter: 2008Q4

REPORT INFORMATION
  Report Type: 
  Country: None (occurrence: None)
  Receive Date: 20081223
  Receipt Date: 20081215
  Transmission Date: 20090506
  Serious: Yes (Other)
  Sender: FDA-Public Use
  Company Number: PHHY2008AU31991

PATIENT
  Sex: Female

DRUGS (1)
  1. TOFRANIL [Suspect]
     Indication: IRRITABLE BOWEL SYNDROME
     Dosage: 20 MG, QHS
     Route: 048
     Dates: start: 20081204

REACTIONS (2)
  - DYSKINESIA [None]
  - MUSCLE SPASMS [None]
